FAERS Safety Report 13100822 (Version 2)
Quarter: 2017Q1

REPORT INFORMATION
  Report Type: Spontaneous
  Country: US (occurrence: US)
  Receive Date: 20170110
  Receipt Date: 20170221
  Transmission Date: 20170428
  Serious: No
  Sender: FDA-Public Use
  Company Number: US-ASTRAZENECA-2017SE00625

PATIENT
  Age: 56 Year
  Sex: Female

DRUGS (2)
  1. SYMBICORT [Suspect]
     Active Substance: BUDESONIDE\FORMOTEROL FUMARATE DIHYDRATE
     Dosage: 160/4.5 MCG, UNKNOWN FREQUENCY
     Route: 055
  2. ALBUTEROL. [Concomitant]
     Active Substance: ALBUTEROL

REACTIONS (9)
  - Chest pain [Recovering/Resolving]
  - Bronchitis [Recovering/Resolving]
  - Device failure [Unknown]
  - Chest discomfort [Recovering/Resolving]
  - Off label use [Unknown]
  - Pneumonia [Recovering/Resolving]
  - Intentional product misuse [Unknown]
  - Malaise [Unknown]
  - Circumstance or information capable of leading to medication error [Unknown]

NARRATIVE: CASE EVENT DATE: 2016
